FAERS Safety Report 25129327 (Version 1)
Quarter: 2025Q1

REPORT INFORMATION
  Report Type: Spontaneous
  Country: ES (occurrence: ES)
  Receive Date: 20250327
  Receipt Date: 20250327
  Transmission Date: 20250409
  Serious: Yes (Other)
  Sender: AUROBINDO
  Company Number: ES-AUROBINDO-AUR-APL-2025-015626

PATIENT
  Age: 69 Year
  Sex: Male

DRUGS (10)
  1. MYCOPHENOLIC ACID [Suspect]
     Active Substance: MYCOPHENOLIC ACID
     Indication: VEXAS syndrome
     Route: 065
     Dates: start: 2014
  2. CYCLOSPORINE [Suspect]
     Active Substance: CYCLOSPORINE
     Indication: VEXAS syndrome
     Route: 065
     Dates: start: 2014
  3. RITUXIMAB [Suspect]
     Active Substance: RITUXIMAB
     Indication: VEXAS syndrome
     Route: 065
     Dates: start: 2014
  4. TACROLIMUS [Suspect]
     Active Substance: TACROLIMUS
     Indication: VEXAS syndrome
     Route: 065
     Dates: start: 2014
  5. TOFACITINIB [Suspect]
     Active Substance: TOFACITINIB
     Indication: VEXAS syndrome
     Route: 065
     Dates: start: 2014
  6. METHOTREXATE [Concomitant]
     Active Substance: METHOTREXATE
     Indication: Scleritis
     Route: 048
  7. FOLIC ACID [Concomitant]
     Active Substance: FOLIC ACID
     Indication: Anaemia macrocytic
     Route: 065
  8. ERYTHROPOIETIN [Concomitant]
     Active Substance: ERYTHROPOIETIN
     Indication: Anaemia macrocytic
     Route: 065
  9. PREDNISONE [Concomitant]
     Active Substance: PREDNISONE
     Indication: Scleritis
     Route: 048
  10. PREDNISONE [Concomitant]
     Active Substance: PREDNISONE
     Indication: Neutrophilic dermatosis

REACTIONS (2)
  - Drug intolerance [Unknown]
  - Off label use [Unknown]
